FAERS Safety Report 18857685 (Version 1)
Quarter: 2021Q1

REPORT INFORMATION
  Report Type: Spontaneous
  Country: US (occurrence: US)
  Receive Date: 20210208
  Receipt Date: 20210208
  Transmission Date: 20210420
  Serious: No
  Sender: FDA-Public Use
  Company Number: US-ASTRAZENECA-2021A034835

PATIENT

DRUGS (2)
  1. DICYCLOMINE [Interacting]
     Active Substance: DICYCLOMINE HYDROCHLORIDE
     Dosage: UNK, LIQUID
     Route: 048
  2. PRILOSEC OTC [Suspect]
     Active Substance: OMEPRAZOLE MAGNESIUM
     Dosage: 1 DOSAGE FORM, 1 /DAY, (5 OUT OF 14 DAYS)
     Route: 048

REACTIONS (2)
  - Unevaluable event [Unknown]
  - Drug interaction [Not Recovered/Not Resolved]

NARRATIVE: CASE EVENT DATE: 20210122
